FAERS Safety Report 8557955-3 (Version None)
Quarter: 2012Q3

REPORT INFORMATION
  Report Type: 
  Country: None (occurrence: None)
  Receive Date: 20120801
  Receipt Date: 20120724
  Transmission Date: 20120928
  Serious: Yes (Other)
  Sender: FDA-Public Use
  Company Number: US-JNJFOC-20120713480

PATIENT
  Sex: Female
  Weight: 38.1 kg

DRUGS (5)
  1. TYLENOL (CAPLET) [Concomitant]
     Indication: PREMEDICATION
     Route: 048
  2. REMICADE [Suspect]
     Dosage: 5 MG/KG
     Route: 042
     Dates: start: 20120601
  3. CORTICOSTEROID (UNSPECIFIED) [Concomitant]
     Indication: PREMEDICATION
     Route: 042
  4. REMICADE [Suspect]
     Indication: CROHN'S DISEASE
     Route: 042
     Dates: start: 20120724
  5. BENADRYL [Concomitant]
     Indication: PREMEDICATION
     Route: 042

REACTIONS (5)
  - FEELING COLD [None]
  - HYPOTENSION [None]
  - CHEST PAIN [None]
  - INFUSION RELATED REACTION [None]
  - TREMOR [None]
